FAERS Safety Report 19305481 (Version 1)
Quarter: 2021Q2

REPORT INFORMATION
  Report Type: Spontaneous
  Country: AT (occurrence: AT)
  Receive Date: 20210525
  Receipt Date: 20210525
  Transmission Date: 20210717
  Serious: Yes (Other)
  Sender: FDA-Public Use
  Company Number: AT-PFIZER INC-2021539616

PATIENT
  Age: 34 Year
  Sex: Male

DRUGS (1)
  1. ADRIBLASTIN [Suspect]
     Active Substance: DOXORUBICIN HYDROCHLORIDE
     Dosage: 50 ML, SINGLE, ACCORDING TO PRODUCT INFORMATION, PERIPHERAL
     Dates: start: 20210217, end: 20210217

REACTIONS (3)
  - Infusion site erythema [Unknown]
  - Administration site extravasation [Unknown]
  - Skin necrosis [Unknown]

NARRATIVE: CASE EVENT DATE: 20210217
